FAERS Safety Report 16887540 (Version 3)
Quarter: 2021Q3

REPORT INFORMATION
  Report Type: Report from Study
  Country: US (occurrence: US)
  Receive Date: 20191005
  Receipt Date: 20210809
  Transmission Date: 20211014
  Serious: Yes (Death, Life-Threatening, Hospitalization, Other)
  Sender: FDA-Public Use
  Company Number: US-ROCHE-2247883

PATIENT
  Age: 64 Year
  Sex: Female
  Weight: 57.2 kg

DRUGS (12)
  1. COBIMETINIB. [Suspect]
     Active Substance: COBIMETINIB
     Indication: CHOLANGIOCARCINOMA
     Dosage: LAST DOSE OF COBIMETINIB ON 01/JAN/2019
     Route: 048
     Dates: start: 20180604
  2. DULOXETINE. [Concomitant]
     Active Substance: DULOXETINE
  3. LISINOPRIL. [Concomitant]
     Active Substance: LISINOPRIL
  4. OXYCODONE [Concomitant]
     Active Substance: OXYCODONE
  5. POTASSIUM CHLORIDE. [Concomitant]
     Active Substance: POTASSIUM CHLORIDE
  6. ATEZOLIZUMAB. [Suspect]
     Active Substance: ATEZOLIZUMAB
     Indication: CHOLANGIOCARCINOMA
     Dosage: LAST DOSE OF ATEZOLIZUMAB ON 29/AUG/2018
     Route: 042
     Dates: start: 20180604
  7. PANCRELIPASE. [Concomitant]
     Active Substance: PANCRELIPASE
  8. PANTOPRAZOLE [Concomitant]
     Active Substance: PANTOPRAZOLE
  9. LEVOTHYROXINE. [Concomitant]
     Active Substance: LEVOTHYROXINE
  10. PROCHLORPERAZINE. [Concomitant]
     Active Substance: PROCHLORPERAZINE
  11. RANITIDINE. [Concomitant]
     Active Substance: RANITIDINE
  12. ZOLPIDEM [Concomitant]
     Active Substance: ZOLPIDEM TARTRATE

REACTIONS (14)
  - Confusional state [Not Recovered/Not Resolved]
  - Aspartate aminotransferase increased [Unknown]
  - Lymphocyte count decreased [Unknown]
  - Hypotension [Not Recovered/Not Resolved]
  - Multiple organ dysfunction syndrome [Not Recovered/Not Resolved]
  - Cerebrovascular accident [Fatal]
  - Vomiting [Not Recovered/Not Resolved]
  - Hypertension [Unknown]
  - Hypoxia [Not Recovered/Not Resolved]
  - Portal vein thrombosis [Not Recovered/Not Resolved]
  - Acute respiratory distress syndrome [Not Recovered/Not Resolved]
  - Aspiration [Not Recovered/Not Resolved]
  - Diarrhoea [Unknown]
  - Hypokalaemia [Unknown]

NARRATIVE: CASE EVENT DATE: 20190105
